FAERS Safety Report 9370159 (Version 3)
Quarter: 2013Q3

REPORT INFORMATION
  Report Type: Spontaneous
  Country: FR (occurrence: FR)
  Receive Date: 20130626
  Receipt Date: 20130927
  Transmission Date: 20140515
  Serious: Yes (Death, Other)
  Sender: FDA-Public Use
  Company Number: FR-JNJFOC-20130615495

PATIENT
  Sex: 0

DRUGS (11)
  1. DOXORUBICIN [Suspect]
     Indication: DIFFUSE LARGE B-CELL LYMPHOMA
     Dosage: ON DAY 1
     Route: 042
  2. RITUXIMAB [Suspect]
     Indication: DIFFUSE LARGE B-CELL LYMPHOMA
     Dosage: ON DAY 1
     Route: 042
  3. CYCLOPHOSPHAMIDE [Suspect]
     Indication: DIFFUSE LARGE B-CELL LYMPHOMA
     Dosage: ON DAY 1
     Route: 042
  4. VINDESINE [Suspect]
     Indication: DIFFUSE LARGE B-CELL LYMPHOMA
     Dosage: DAYS 1 AND 5
     Route: 065
  5. BLEOMYCIN [Suspect]
     Indication: DIFFUSE LARGE B-CELL LYMPHOMA
     Dosage: DAYS 1 AND 5
     Route: 042
  6. PREDNISONE [Suspect]
     Indication: DIFFUSE LARGE B-CELL LYMPHOMA
     Dosage: ON DAYS 1 THROUGH 5
     Route: 048
  7. METHOTREXATE [Suspect]
     Indication: DIFFUSE LARGE B-CELL LYMPHOMA
     Dosage: ON DAY 2
     Route: 037
  8. FILGRASTIM [Concomitant]
     Indication: PALLIATIVE CARE
     Dosage: FROM DAYS 6 TO 13
     Route: 065
  9. CO-TRIMOXAZOLE [Concomitant]
     Indication: PROPHYLAXIS
     Route: 065
  10. ACYCLOVIR [Concomitant]
     Indication: PROPHYLAXIS
     Route: 065
  11. PEGFILGRASTIM [Concomitant]
     Indication: PALLIATIVE CARE
     Dosage: DAY 3
     Route: 065

REACTIONS (15)
  - Sepsis [Fatal]
  - Sudden death [Fatal]
  - Toxicity to various agents [Fatal]
  - Pneumocystis jirovecii infection [Unknown]
  - Leukopenia [Unknown]
  - Anaemia [Unknown]
  - Thrombocytopenia [Unknown]
  - Mucosal inflammation [Unknown]
  - Infection [Unknown]
  - Cardiac disorder [Unknown]
  - Diffuse large B-cell lymphoma [Unknown]
  - Oral herpes [Unknown]
  - Angiopathy [Unknown]
  - Gastrointestinal toxicity [Unknown]
  - Pulmonary toxicity [Unknown]
